FAERS Safety Report 4431331-7 (Version None)
Quarter: 2004Q3

REPORT INFORMATION
  Report Type: 
  Country: None (occurrence: None)
  Receive Date: 20040824
  Receipt Date: 20031218
  Transmission Date: 20050211
  Serious: Yes (Hospitalization, Disabling, Other)
  Sender: FDA-Public Use
  Company Number: US-MERCK-0312USA02101

PATIENT
  Age: 70 Year
  Sex: Male
  Weight: 85 kg

DRUGS (14)
  1. VICODIN [Concomitant]
     Route: 065
  2. ASPIRIN [Concomitant]
     Route: 065
  3. LIPITOR [Concomitant]
     Route: 065
  4. CAPOTEN [Concomitant]
     Route: 065
  5. PLAVIX [Concomitant]
     Route: 065
  6. LASIX [Concomitant]
     Route: 065
  7. AMARYL [Concomitant]
     Route: 065
  8. GLIPIZIDE [Concomitant]
     Route: 065
  9. PREVACID [Concomitant]
     Route: 065
  10. GLUCOPHAGE [Concomitant]
     Route: 065
  11. LOPRESSOR [Concomitant]
     Route: 065
  12. NITROGLYCERIN [Concomitant]
     Route: 065
  13. ALTACE [Concomitant]
     Route: 065
  14. VIOXX [Suspect]
     Indication: BACK PAIN
     Route: 048
     Dates: start: 20021007, end: 20030105

REACTIONS (43)
  - ACUTE MYOCARDIAL INFARCTION [None]
  - ANAEMIA [None]
  - ANXIETY [None]
  - ARTHRITIS [None]
  - BRONCHITIS ACUTE [None]
  - CARDIAC FAILURE CONGESTIVE [None]
  - CARDIOGENIC SHOCK [None]
  - CARDIOMYOPATHY [None]
  - CHRONIC OBSTRUCTIVE AIRWAYS DISEASE [None]
  - COLONIC POLYP [None]
  - CONVULSION [None]
  - CORONARY ARTERY DISEASE [None]
  - DECUBITUS ULCER [None]
  - DIABETIC NEUROPATHY [None]
  - DYSPHAGIA [None]
  - DYSPNOEA [None]
  - ELECTROLYTE IMBALANCE [None]
  - FAECALOMA [None]
  - GASTROINTESTINAL HAEMORRHAGE [None]
  - HEART RATE IRREGULAR [None]
  - HERPES ZOSTER [None]
  - HYPERTENSION [None]
  - INFLUENZA [None]
  - ISCHAEMIC CARDIOMYOPATHY [None]
  - LIVER FUNCTION TEST ABNORMAL [None]
  - LOBAR PNEUMONIA [None]
  - MALNUTRITION [None]
  - MYOCARDIAL INFARCTION [None]
  - OEDEMA [None]
  - PERICARDITIS [None]
  - PNEUMONIA ASPIRATION [None]
  - POST HERPETIC NEURALGIA [None]
  - PULMONARY OEDEMA [None]
  - PYREXIA [None]
  - RADICULITIS BRACHIAL [None]
  - RESPIRATORY FAILURE [None]
  - ROTATOR CUFF SYNDROME [None]
  - SINUS DISORDER [None]
  - STAPHYLOCOCCAL INFECTION [None]
  - STENT OCCLUSION [None]
  - STRESS SYMPTOMS [None]
  - THROMBOCYTOPENIA [None]
  - TREATMENT NONCOMPLIANCE [None]
